FAERS Safety Report 15390465 (Version 1)
Quarter: 2018Q3

REPORT INFORMATION
  Report Type: Spontaneous
  Country: US (occurrence: US)
  Receive Date: 20180909
  Receipt Date: 20180909
  Transmission Date: 20181010
  Serious: Yes (Other)
  Sender: FDA-Public Use
  Company Number: None

PATIENT
  Age: 60 Year
  Sex: Male
  Weight: 90 kg

DRUGS (1)
  1. BACLOFEN. [Suspect]
     Active Substance: BACLOFEN
     Indication: PAIN
     Route: 048
     Dates: start: 20180905, end: 20180907

REACTIONS (8)
  - Pollakiuria [None]
  - Vision blurred [None]
  - Gait disturbance [None]
  - Hypertension [None]
  - Myalgia [None]
  - Heart rate increased [None]
  - Hypoaesthesia oral [None]
  - Balance disorder [None]

NARRATIVE: CASE EVENT DATE: 20180908
